FAERS Safety Report 7291365-4 (Version None)
Quarter: 2011Q1

REPORT INFORMATION
  Report Type: 
  Country: None (occurrence: None)
  Receive Date: 20110214
  Receipt Date: 20110204
  Transmission Date: 20110831
  Serious: Yes (Hospitalization)
  Sender: FDA-Public Use
  Company Number: B0645804A

PATIENT
  Sex: Male
  Weight: 71 kg

DRUGS (7)
  1. LAPATINIB [Suspect]
     Indication: NEOPLASM
     Dosage: 1000MG PER DAY
     Route: 048
     Dates: start: 20100309
  2. CO-EFFERALGAN [Concomitant]
     Indication: PAIN
     Route: 048
     Dates: start: 20100331
  3. PREDNISONE [Concomitant]
     Indication: ASTHENIA
     Dosage: 25MG PER DAY
     Route: 048
     Dates: start: 20100331
  4. UNKNOWN MEDICATION [Concomitant]
     Indication: PAIN
     Dosage: 40MG PER DAY
     Route: 048
     Dates: start: 20100309, end: 20100326
  5. OXYCONTIN [Suspect]
     Indication: PAIN
     Dosage: 20MG PER DAY
     Route: 048
     Dates: start: 20100324, end: 20100326
  6. RANITIDINE [Concomitant]
     Indication: PROPHYLAXIS
     Dosage: 300MG PER DAY
     Route: 048
     Dates: start: 20100331
  7. SORAFENIB [Suspect]
     Indication: NEOPLASM
     Dosage: 400MG TWICE PER DAY
     Route: 048
     Dates: start: 20100309

REACTIONS (3)
  - DYSPHAGIA [None]
  - VOMITING [None]
  - ASTHENIA [None]
